FAERS Safety Report 15326848 (Version 1)
Quarter: 2018Q3

REPORT INFORMATION
  Report Type: Report from Study
  Country: US (occurrence: US)
  Receive Date: 20180828
  Receipt Date: 20180828
  Transmission Date: 20181010
  Serious: Yes (Hospitalization, Other)
  Sender: FDA-Public Use
  Company Number: US-AMGEN-USACT2018097466

PATIENT
  Age: 6 Year
  Sex: Male
  Weight: 14.39 kg

DRUGS (10)
  1. ACETAMINOPHEN. [Concomitant]
     Active Substance: ACETAMINOPHEN
     Dosage: 224 MG, UNK
     Route: 048
     Dates: start: 20180401
  2. DENOSUMAB [Suspect]
     Active Substance: DENOSUMAB
     Indication: OSTEOGENESIS IMPERFECTA
     Dosage: 0.2 ML, Q6MO
     Route: 058
     Dates: start: 20180710
  3. DIAZEPAM. [Concomitant]
     Active Substance: DIAZEPAM
     Dosage: 1 MG, UNK
     Route: 048
     Dates: start: 20150101
  4. PAMIDRONATE [Suspect]
     Active Substance: PAMIDRONATE DISODIUM
     Indication: PRODUCT USED FOR UNKNOWN INDICATION
     Route: 042
  5. VITAMIN D [Concomitant]
     Active Substance: CHOLECALCIFEROL
     Indication: OSTEOPOROSIS
     Dosage: 400 IU, UNK
     Route: 048
     Dates: start: 20130501
  6. ZOLEDRONATE [Suspect]
     Active Substance: ZOLEDRONIC ACID
     Indication: PRODUCT USED FOR UNKNOWN INDICATION
     Route: 042
  7. ONDANSETRON [Concomitant]
     Active Substance: ONDANSETRON
     Dosage: 2 MG, UNK
     Route: 048
     Dates: start: 20130501
  8. IBUPROFEN. [Concomitant]
     Active Substance: IBUPROFEN
     Dosage: 140 MG, UNK
     Route: 048
     Dates: start: 20180401
  9. MIRALAX [Concomitant]
     Active Substance: POLYETHYLENE GLYCOL 3350
     Dosage: 0.5 UNK, UNK
     Route: 048
     Dates: start: 20171001
  10. OXYCODONE [Concomitant]
     Active Substance: OXYCODONE
     Dosage: 2 MG, UNK
     Route: 048
     Dates: start: 20160101

REACTIONS (1)
  - Femur fracture [Not Recovered/Not Resolved]

NARRATIVE: CASE EVENT DATE: 20180715
